FAERS Safety Report 24761129 (Version 1)
Quarter: 2024Q4

REPORT INFORMATION
  Report Type: Spontaneous
  Country: US (occurrence: US)
  Receive Date: 20241220
  Receipt Date: 20241220
  Transmission Date: 20250114
  Serious: No
  Sender: PFIZER
  Company Number: US-PFIZER INC-202400327236

PATIENT
  Age: 47 Year
  Sex: Female
  Weight: 95.71 kg

DRUGS (4)
  1. XELJANZ XR [Suspect]
     Active Substance: TOFACITINIB CITRATE
     Indication: Rheumatoid arthritis
     Dosage: 11MG TABLET; ONE ONCE A DAY EVERY DAY
     Dates: end: 20241213
  2. HYDROXYCHLOROQUINE [Concomitant]
     Active Substance: HYDROXYCHLOROQUINE
     Indication: Arthritis
     Dosage: STARTED TAKING LIKE 15 YEARS AGO
  3. METHOTREXATE [Concomitant]
     Active Substance: METHOTREXATE
     Indication: Arthritis
     Dosage: 25MG INJECTED ON THURSDAY^S ONCE A WEEK
  4. LEVOTHYROXINE [Concomitant]
     Active Substance: LEVOTHYROXINE
     Indication: Hypothyroidism
     Dosage: STARTED TAKING 15-16 YEARS AGO; 150MCG EVERY DAY IN THE MORNING

REACTIONS (6)
  - Headache [Not Recovered/Not Resolved]
  - Skin lesion [Not Recovered/Not Resolved]
  - Facial pain [Not Recovered/Not Resolved]
  - Cough [Not Recovered/Not Resolved]
  - Dyspnoea [Not Recovered/Not Resolved]
  - Drug hypersensitivity [Unknown]

NARRATIVE: CASE EVENT DATE: 20241213
